FAERS Safety Report 7563699-7 (Version None)
Quarter: 2011Q2

REPORT INFORMATION
  Report Type: 
  Country: None (occurrence: None)
  Receive Date: 20110615
  Receipt Date: 20110607
  Transmission Date: 20111010
  Serious: Yes (Hospitalization, Other)
  Sender: FDA-Public Use
  Company Number: GER/GER/11/0018651

PATIENT
  Age: 38 Year
  Sex: Female
  Weight: 70 kg

DRUGS (6)
  1. LYRICA [Suspect]
     Indication: TRIGEMINAL NEURALGIA
     Dosage: 550 (150-400)MG/DAY; 0 TO10.6 GW, ORAL
     Route: 048
     Dates: start: 20090328, end: 20090612
  2. NOVALGIN (NOVO-PETRIN) [Suspect]
     Indication: PAIN
     Dosage: 2250 MG, 0 TO 10 GW, ORAL
     Route: 048
  3. FEMIBION (CALCIUM) [Concomitant]
  4. FLUOXETINE [Suspect]
     Indication: DEPRESSION
     Dosage: 40 MG, 0 10.6 GW, ORAL
     Route: 048
     Dates: start: 20090328, end: 20090612
  5. OMEPRAZOLE [Suspect]
     Indication: GASTRIC DISORDER
     Dosage: 40 MG, 7 TO 10.6 GW, ORAL
     Route: 048
  6. HUMINSULIN NORMAL 100 (HUMAN MIXTARD /00806401/) [Concomitant]

REACTIONS (4)
  - CAESAREAN SECTION [None]
  - GESTATIONAL DIABETES [None]
  - DRUG EXPOSURE DURING PREGNANCY [None]
  - PREGNANCY [None]
